FAERS Safety Report 6349377-0 (Version None)
Quarter: 2009Q3

REPORT INFORMATION
  Report Type: 
  Country: None (occurrence: None)
  Receive Date: 20090911
  Receipt Date: 20090901
  Transmission Date: 20100115
  Serious: Yes (Hospitalization, Disabling)
  Sender: FDA-Public Use
  Company Number: DE-SANOFI-SYNTHELABO-A04200900904

PATIENT
  Sex: Male
  Weight: 85 kg

DRUGS (7)
  1. PLAVIX [Suspect]
     Indication: PERIPHERAL ARTERIAL OCCLUSIVE DISEASE
     Route: 048
     Dates: start: 20090501
  2. ASPIRIN [Concomitant]
     Indication: CORONARY ARTERY DISEASE
     Route: 048
  3. SIMVASTATIN [Interacting]
     Indication: HYPERCHOLESTEROLAEMIA
     Route: 048
     Dates: end: 20090601
  4. VOTUM [Concomitant]
     Indication: HYPERTENSION
     Dosage: 20/125 MG DAILY
     Route: 048
  5. UDC [Concomitant]
     Indication: DRUG USE FOR UNKNOWN INDICATION
     Route: 048
  6. VERAPAMIL [Concomitant]
     Indication: DRUG USE FOR UNKNOWN INDICATION
     Route: 048
  7. BUDES [Concomitant]
     Indication: CHRONIC OBSTRUCTIVE PULMONARY DISEASE
     Dosage: UNK
     Route: 048

REACTIONS (6)
  - BLOOD CREATINE PHOSPHOKINASE INCREASED [None]
  - DRUG INTERACTION [None]
  - GENERAL PHYSICAL HEALTH DETERIORATION [None]
  - MUSCULAR WEAKNESS [None]
  - MYALGIA [None]
  - RHABDOMYOLYSIS [None]
